FAERS Safety Report 9249522 (Version 1)
Quarter: 2013Q2

REPORT INFORMATION
  Report Type: Spontaneous
  Country: US (occurrence: US)
  Receive Date: 20130423
  Receipt Date: 20130423
  Transmission Date: 20140414
  Serious: Yes (Other)
  Sender: FDA-Public Use
  Company Number: CHPA2013US006684

PATIENT
  Age: 58 Year
  Sex: Female

DRUGS (2)
  1. MYOFLEX ANALGESIC CREME [Suspect]
     Indication: PAIN
     Dosage: UNK, ONCE OR TWICE A WEEK
     Route: 061
     Dates: start: 198007
  2. MYOFLEX ANALGESIC CREME [Suspect]
     Indication: FIBROMYALGIA

REACTIONS (8)
  - Fibromyalgia [Unknown]
  - Accident [Unknown]
  - Joint injury [Recovering/Resolving]
  - Intervertebral disc protrusion [Recovering/Resolving]
  - Carpal tunnel syndrome [Not Recovered/Not Resolved]
  - Nerve compression [Not Recovered/Not Resolved]
  - Neck injury [Recovering/Resolving]
  - Off label use [Unknown]
